FAERS Safety Report 4664739-5 (Version None)
Quarter: 2005Q2

REPORT INFORMATION
  Report Type: 
  Country: None (occurrence: None)
  Receive Date: 20050516
  Receipt Date: 20050503
  Transmission Date: 20051028
  Serious: No
  Sender: FDA-Public Use
  Company Number: 11012

PATIENT
  Age: 2 Year
  Sex: Male

DRUGS (2)
  1. VINCRISTINE SULFATE [Suspect]
     Indication: OPTIC TRACT GLIOMA
     Dosage: MG FREQ UNK, IV
     Route: 042
     Dates: start: 20050419, end: 20050419
  2. CARBOPLATIN [Suspect]
     Indication: OPTIC TRACT GLIOMA
     Dosage: 360 MG FREQ UNK, IV
     Route: 042
     Dates: start: 20050419, end: 20050419

REACTIONS (3)
  - OEDEMA MOUTH [None]
  - RASH ERYTHEMATOUS [None]
  - RHINITIS [None]
